FAERS Safety Report 6030051-5 (Version None)
Quarter: 2009Q1

REPORT INFORMATION
  Report Type: 
  Country: None (occurrence: None)
  Receive Date: 20090107
  Receipt Date: 20090105
  Transmission Date: 20090719
  Serious: Yes (Other)
  Sender: FDA-Public Use
  Company Number: IT-TEVA-183342ISR

PATIENT
  Age: 4 Year
  Sex: Female

DRUGS (6)
  1. METHOTREXATE [Suspect]
     Indication: GRAFT VERSUS HOST DISEASE
     Dates: start: 19920101
  2. METHOTREXATE [Suspect]
  3. CYCLOSPORINE [Suspect]
     Indication: GRAFT VERSUS HOST DISEASE
     Route: 042
  4. PREDNISONE [Suspect]
     Indication: GRAFT VERSUS HOST DISEASE
  5. THIOTEPA [Suspect]
     Dates: start: 19920101
  6. MELPHALAN [Suspect]
     Dates: start: 19920101

REACTIONS (1)
  - BASAL CELL CARCINOMA [None]
